FAERS Safety Report 25216090 (Version 1)
Quarter: 2025Q2

REPORT INFORMATION
  Report Type: Spontaneous
  Country: US (occurrence: US)
  Receive Date: 20250418
  Receipt Date: 20250418
  Transmission Date: 20250716
  Serious: No
  Sender: ROCHE
  Company Number: US-ROCHE-10000253565

PATIENT
  Age: 67 Year
  Sex: Male
  Weight: 67.59 kg

DRUGS (9)
  1. ACTEMRA [Suspect]
     Active Substance: TOCILIZUMAB
     Indication: Scleroderma
     Route: 058
     Dates: start: 20250405
  2. PREDNISONE [Concomitant]
     Active Substance: PREDNISONE
     Indication: Scleroderma
     Route: 048
     Dates: start: 2014
  3. PROLIA [Concomitant]
     Active Substance: DENOSUMAB
     Dates: start: 2023
  4. AMLODIPINE [Concomitant]
     Active Substance: AMLODIPINE BESYLATE
     Indication: Blood pressure measurement
     Route: 048
     Dates: start: 2023
  5. TAMSULOSIN [Concomitant]
     Active Substance: TAMSULOSIN
     Route: 048
  6. TRAZODONE [Concomitant]
     Active Substance: TRAZODONE HYDROCHLORIDE
     Route: 048
     Dates: start: 2016
  7. TRAMADOL [Concomitant]
     Active Substance: TRAMADOL
     Indication: Pain
     Route: 048
     Dates: start: 2016
  8. VITAMIN B12 [Concomitant]
     Active Substance: CYANOCOBALAMIN
     Indication: Vitamin B12 decreased
     Route: 058
     Dates: start: 2022
  9. OMEPRAZOLE [Concomitant]
     Active Substance: OMEPRAZOLE
     Indication: Gastrooesophageal reflux disease
     Route: 048
     Dates: start: 2014

REACTIONS (4)
  - Accidental exposure to product [Unknown]
  - Off label use [Unknown]
  - Device malfunction [Unknown]
  - No adverse event [Unknown]

NARRATIVE: CASE EVENT DATE: 20250405
